FAERS Safety Report 5318892-0 (Version None)
Quarter: 2007Q2

REPORT INFORMATION
  Report Type: 
  Country: None (occurrence: None)
  Receive Date: 20070503
  Receipt Date: 20070424
  Transmission Date: 20071010
  Serious: Yes (Death)
  Sender: FDA-Public Use
  Company Number: 2007-02082

PATIENT
  Age: 33 Year
  Sex: Female

DRUGS (1)
  1. SULFASALAZINE [Suspect]
     Indication: RHEUMATOID ARTHRITIS

REACTIONS (10)
  - CARDIAC FAILURE [None]
  - COMPLICATIONS OF TRANSPLANTED LIVER [None]
  - DISEASE RECURRENCE [None]
  - DRUG HYPERSENSITIVITY [None]
  - EOSINOPHILIA [None]
  - HEPATIC NECROSIS [None]
  - HERPES VIRUS INFECTION [None]
  - LIVER TRANSPLANT [None]
  - RENAL FAILURE [None]
  - RESPIRATORY FAILURE [None]
